FAERS Safety Report 18269837 (Version 3)
Quarter: 2021Q1

REPORT INFORMATION
  Report Type: Report from Study
  Country: None (occurrence: US)
  Receive Date: 20200915
  Receipt Date: 20210128
  Transmission Date: 20210419
  Serious: Yes (Death)
  Sender: FDA-Public Use
  Company Number: US-ABBVIE-20K-163-3566397-00

PATIENT
  Sex: Male

DRUGS (6)
  1. SUTENT [Concomitant]
     Active Substance: SUNITINIB MALATE
     Indication: NEOPLASM MALIGNANT
  2. SOMATULINE [Concomitant]
     Active Substance: LANREOTIDE ACETATE
     Indication: HEPATIC NEOPLASM
  3. METFORMIN [Concomitant]
     Active Substance: METFORMIN HYDROCHLORIDE
     Indication: BLOOD GLUCOSE INCREASED
  4. CREON [Suspect]
     Active Substance: PANCRELIPASE AMYLASE\PANCRELIPASE LIPASE\PANCRELIPASE PROTEASE
     Indication: DYSPEPSIA
     Dosage: DOSE TEXT? ONE CAPSULE BEFORE MEALS
     Route: 048
     Dates: start: 2014, end: 202002
  5. CREON [Suspect]
     Active Substance: PANCRELIPASE AMYLASE\PANCRELIPASE LIPASE\PANCRELIPASE PROTEASE
     Indication: PANCREATIC FAILURE
  6. TOUJEO [Concomitant]
     Active Substance: INSULIN GLARGINE
     Indication: DIABETES MELLITUS

REACTIONS (2)
  - Pancreatic neuroendocrine tumour metastatic [Fatal]
  - Feeding disorder [Recovered/Resolved]
